FAERS Safety Report 5699346-9 (Version None)
Quarter: 2008Q2

REPORT INFORMATION
  Report Type: 
  Country: None (occurrence: None)
  Receive Date: 20080404
  Receipt Date: 20080324
  Transmission Date: 20081010
  Serious: Yes (Hospitalization)
  Sender: FDA-Public Use
  Company Number: SPV1-2008-00668

PATIENT
  Age: 19 Year
  Sex: Male

DRUGS (4)
  1. LIALDA [Suspect]
     Indication: COLITIS ULCERATIVE
     Dosage: 3.6 G, 1X/DAY:QD, ORAL
     Route: 048
     Dates: start: 20080301, end: 20080301
  2. CIPRO [Concomitant]
  3. FLAGYL [Concomitant]
  4. PREDNISONE TAB [Concomitant]

REACTIONS (1)
  - RASH GENERALISED [None]
